FAERS Safety Report 8170104-9 (Version None)
Quarter: 2012Q1

REPORT INFORMATION
  Report Type: 
  Country: None (occurrence: None)
  Receive Date: 20120228
  Receipt Date: 20120220
  Transmission Date: 20120608
  Serious: Yes (Other)
  Sender: FDA-Public Use
  Company Number: US-B.I. PHARMACEUTICALS,INC./RIDGEFIELD-2012-EU-01005GD

PATIENT
  Age: 54 Year
  Sex: Female

DRUGS (4)
  1. METHADONE HCL [Suspect]
     Indication: POST LAMINECTOMY SYNDROME
  2. CLONIDINE [Suspect]
     Indication: POST LAMINECTOMY SYNDROME
  3. CLONIDINE [Suspect]
     Indication: PAIN
     Dosage: 0.32 MG
     Route: 037
  4. METHADONE HCL [Suspect]
     Indication: PAIN
     Dosage: 3.3 MG
     Route: 037

REACTIONS (3)
  - CATHETER SITE INFLAMMATION [None]
  - PAIN [None]
  - IMPLANT SITE MASS [None]
